FAERS Safety Report 18119091 (Version 1)
Quarter: 2020Q3

REPORT INFORMATION
  Report Type: Spontaneous
  Country: IL (occurrence: IL)
  Receive Date: 20200806
  Receipt Date: 20200806
  Transmission Date: 20201103
  Serious: Yes (Hospitalization, Other)
  Sender: FDA-Public Use
  Company Number: IL-ROCHE-2650401

PATIENT
  Age: 56 Year
  Sex: Female

DRUGS (12)
  1. CARBOPLATIN. [Suspect]
     Active Substance: CARBOPLATIN
     Indication: METASTASIS
     Route: 065
  2. ASPIRIN CARDIO [Concomitant]
     Active Substance: ASPIRIN
     Route: 048
  3. AVASTIN [Suspect]
     Active Substance: BEVACIZUMAB
     Indication: PRODUCT USED FOR UNKNOWN INDICATION
     Route: 065
  4. GEMZAR [Suspect]
     Active Substance: GEMCITABINE HYDROCHLORIDE
     Indication: DISEASE RECURRENCE
     Route: 065
     Dates: start: 20190801, end: 2019
  5. RUCAPARIB [Suspect]
     Active Substance: RUCAPARIB
     Dosage: DOSE REDUCED
     Route: 065
  6. NIRAPARIB [Suspect]
     Active Substance: NIRAPARIB
     Indication: PRODUCT USED FOR UNKNOWN INDICATION
     Route: 065
     Dates: start: 202003
  7. TAXOTERE [Suspect]
     Active Substance: DOCETAXEL
     Indication: METASTASIS
     Route: 065
  8. CARBOPLATIN. [Suspect]
     Active Substance: CARBOPLATIN
     Indication: DISEASE RECURRENCE
     Route: 065
     Dates: start: 20190801, end: 20191219
  9. MAGNOX [Concomitant]
     Route: 048
  10. RUCAPARIB [Suspect]
     Active Substance: RUCAPARIB
     Indication: PRODUCT USED FOR UNKNOWN INDICATION
     Route: 065
  11. RUCAPARIB [Suspect]
     Active Substance: RUCAPARIB
     Dosage: DISCONTINUED
     Route: 065
  12. CARDILOC [Concomitant]
     Active Substance: BISOPROLOL FUMARATE
     Route: 048

REACTIONS (30)
  - Abdominal pain lower [Unknown]
  - Hyperhidrosis [Unknown]
  - Dyspnoea [Unknown]
  - Urine analysis abnormal [Unknown]
  - Abdominal pain [Unknown]
  - Pain [Unknown]
  - Nausea [Unknown]
  - Fibrosis [Unknown]
  - Stenosis [Unknown]
  - Asthenia [Unknown]
  - Arthralgia [Unknown]
  - Hypokinesia [Unknown]
  - Crying [Unknown]
  - Presyncope [Unknown]
  - Fall [Unknown]
  - Neuropathy peripheral [Unknown]
  - Chest discomfort [Unknown]
  - Acute myocardial infarction [Unknown]
  - Transaminases increased [Unknown]
  - Myalgia [Unknown]
  - Oral candidiasis [Unknown]
  - Abdominal pain upper [Unknown]
  - Pain in extremity [Unknown]
  - Balance disorder [Unknown]
  - Thrombocytopenia [Unknown]
  - Affective disorder [Unknown]
  - Ill-defined disorder [Unknown]
  - Constipation [Recovered/Resolved]
  - Chest pain [Unknown]
  - Metastasis [Unknown]

NARRATIVE: CASE EVENT DATE: 202007
